FAERS Safety Report 8078894-0 (Version None)
Quarter: 2012Q1

REPORT INFORMATION
  Report Type: 
  Country: None (occurrence: None)
  Receive Date: 20120124
  Receipt Date: 20120109
  Transmission Date: 20120608
  Serious: Yes (Death, Hospitalization)
  Sender: FDA-Public Use
  Company Number: JPI-P-000868

PATIENT
  Age: 55 Year
  Sex: Female

DRUGS (6)
  1. OPIOIDS [Suspect]
     Indication: PRODUCT USED FOR UNKNOWN INDICATION
  2. NARCOTICS AND PSYCHODYSLEPTICS (HALLUCINOGENS), NOT ELSWHERE [Suspect]
     Indication: PRODUCT USED FOR UNKNOWN INDICATION
  3. XYREM [Suspect]
     Indication: SLEEP DISORDER
     Dosage: (APPROXIMATELY 2 GM NIGHTLY), ORAL
     Route: 048
     Dates: start: 20060101
  4. NORCO [Suspect]
     Indication: PRODUCT USED FOR UNKNOWN INDICATION
     Dates: end: 20070217
  5. KLONOPIN [Suspect]
     Indication: PRODUCT USED FOR UNKNOWN INDICATION
     Dosage: (APPROXIMATELY .5 MILLIGRAM)
     Dates: end: 20070217
  6. OTHER SYNTHETIC NARCOTICS [Suspect]
     Indication: PRODUCT USED FOR UNKNOWN INDICATION

REACTIONS (5)
  - INTENTIONAL DRUG MISUSE [None]
  - OVERDOSE [None]
  - TREATMENT NONCOMPLIANCE [None]
  - COMPLETED SUICIDE [None]
  - LOSS OF CONSCIOUSNESS [None]
